FAERS Safety Report 5413661-5 (Version None)
Quarter: 2007Q3

REPORT INFORMATION
  Report Type: 
  Country: None (occurrence: None)
  Receive Date: 20070814
  Receipt Date: 20070809
  Transmission Date: 20080115
  Serious: Yes (Death, Other)
  Sender: FDA-Public Use
  Company Number: PHBS2007JP12816

PATIENT
  Age: 61 Year
  Sex: Female

DRUGS (4)
  1. CYCLOSPORINE [Suspect]
     Indication: DERMATOMYOSITIS
     Route: 065
  2. PREDNISOLONE [Suspect]
     Dosage: 40 MG/D
  3. SIVELESTAT [Suspect]
     Route: 065
  4. STEROIDS NOS [Suspect]
     Dosage: PULSE THERAPY

REACTIONS (4)
  - CANDIDIASIS [None]
  - CONCOMITANT DISEASE PROGRESSION [None]
  - INTERSTITIAL LUNG DISEASE [None]
  - PSYCHOTIC DISORDER [None]
